FAERS Safety Report 25665255 (Version 1)
Quarter: 2025Q3

REPORT INFORMATION
  Report Type: Spontaneous
  Country: RU (occurrence: RU)
  Receive Date: 20250811
  Receipt Date: 20250811
  Transmission Date: 20251021
  Serious: Yes (Hospitalization, Disabling)
  Sender: CHEPLAPHARM
  Company Number: None

PATIENT
  Age: 13 Year
  Sex: Female
  Weight: 40.15 kg

DRUGS (25)
  1. QUETIAPINE [Suspect]
     Active Substance: QUETIAPINE
     Indication: Conversion disorder
     Dosage: DAILY DOSE: 50 MILLIGRAM
  2. QUETIAPINE [Suspect]
     Active Substance: QUETIAPINE
     Indication: Mixed anxiety and depressive disorder
     Dosage: DAILY DOSE: 50 MILLIGRAM
  3. QUETIAPINE [Suspect]
     Active Substance: QUETIAPINE
     Indication: Conversion disorder
     Dosage: DAILY DOSE: 100 MILLIGRAM
  4. QUETIAPINE [Suspect]
     Active Substance: QUETIAPINE
     Indication: Mixed anxiety and depressive disorder
     Dosage: DAILY DOSE: 100 MILLIGRAM
  5. QUETIAPINE [Suspect]
     Active Substance: QUETIAPINE
     Indication: Conversion disorder
     Dosage: LOW DOSES?DAILY DOSE: 50 MILLIGRAM
  6. QUETIAPINE [Suspect]
     Active Substance: QUETIAPINE
     Indication: Mixed anxiety and depressive disorder
     Dosage: LOW DOSES?DAILY DOSE: 50 MILLIGRAM
  7. OLANZAPINE [Suspect]
     Active Substance: OLANZAPINE
     Indication: Catatonia
     Dosage: DAILY DOSE: 5 MILLIGRAM
  8. OLANZAPINE [Suspect]
     Active Substance: OLANZAPINE
     Indication: Mixed anxiety and depressive disorder
     Dosage: DAILY DOSE: 5 MILLIGRAM
  9. OLANZAPINE [Suspect]
     Active Substance: OLANZAPINE
     Indication: Catatonia
     Dosage: DAILY DOSE: 15 MILLIGRAM
  10. OLANZAPINE [Suspect]
     Active Substance: OLANZAPINE
     Indication: Mixed anxiety and depressive disorder
     Dosage: DAILY DOSE: 15 MILLIGRAM
  11. SERTRALINE [Suspect]
     Active Substance: SERTRALINE HYDROCHLORIDE
     Indication: Mixed anxiety and depressive disorder
     Dosage: DAILY DOSE: 100 MILLIGRAM
  12. SERTRALINE [Suspect]
     Active Substance: SERTRALINE HYDROCHLORIDE
     Indication: Mixed anxiety and depressive disorder
     Dosage: DAILY DOSE: 100 MILLIGRAM
  13. ARIPIPRAZOLE [Suspect]
     Active Substance: ARIPIPRAZOLE
     Indication: Dissociative disorder
     Dosage: DAILY DOSE: 5 MILLIGRAM
  14. ARIPIPRAZOLE [Suspect]
     Active Substance: ARIPIPRAZOLE
     Indication: Conversion disorder
     Dosage: DAILY DOSE: 5 MILLIGRAM
  15. ARIPIPRAZOLE [Suspect]
     Active Substance: ARIPIPRAZOLE
     Indication: Mixed anxiety and depressive disorder
     Dosage: DAILY DOSE: 5 MILLIGRAM
  16. PERICIAZINE [Suspect]
     Active Substance: PERICIAZINE
     Indication: Catatonia
     Dosage: DAILY DOSE: 15 MILLIGRAM
  17. PERICIAZINE [Suspect]
     Active Substance: PERICIAZINE
     Indication: Catatonia
     Dosage: DAILY DOSE: 10 MILLIGRAM
  18. HALOPERIDOL [Suspect]
     Active Substance: HALOPERIDOL
     Indication: Catatonia
     Dosage: DAILY DOSE: 9 MILLIGRAM
  19. BIPERIDEN [Suspect]
     Active Substance: BIPERIDEN
     Indication: Catatonia
     Dosage: 1 MG 3 TIMES A DAY?DAILY DOSE: 3 MILLIGRAM
     Route: 048
  20. BIPERIDEN [Suspect]
     Active Substance: BIPERIDEN
     Indication: Catatonia
     Route: 048
  21. BIPERIDEN [Suspect]
     Active Substance: BIPERIDEN
     Indication: Catatonia
     Dosage: DAILY DOSE: 3 MILLIGRAM
     Route: 048
  22. BIPERIDEN [Suspect]
     Active Substance: BIPERIDEN
     Indication: Catatonia
     Route: 048
  23. HOPANTENIC ACID [Suspect]
     Active Substance: HOPANTENIC ACID
     Indication: Catatonia
     Dosage: 500 MG 3 TIMES A DAY?DAILY DOSE: 1500 MILLIGRAM
  24. DIAZEPAM [Concomitant]
     Active Substance: DIAZEPAM
     Dosage: DAILY DOSE: 10 MILLIGRAM
     Route: 030
  25. AMANTADINE [Concomitant]
     Active Substance: AMANTADINE
     Dosage: DAILY DOSE: 100 MILLIGRAM

REACTIONS (7)
  - Extrapyramidal disorder [Recovered/Resolved]
  - Hypertonia [Recovered/Resolved]
  - Dystonia [Recovered/Resolved]
  - Tremor [Recovered/Resolved]
  - Somatic symptom disorder [Unknown]
  - Therapeutic product effect incomplete [Unknown]
  - Off label use [Unknown]
